FAERS Safety Report 5046322-5 (Version None)
Quarter: 2006Q2

REPORT INFORMATION
  Report Type: 
  Country: None (occurrence: None)
  Receive Date: 20060629
  Receipt Date: 20060621
  Transmission Date: 20061013
  Serious: No
  Sender: FDA-Public Use
  Company Number: 226554

PATIENT
  Age: 18 Year
  Sex: Female
  Weight: 27.7 kg

DRUGS (6)
  1. XOLAIR [Suspect]
     Indication: ASTHMA
     Dosage: 375 MG, Q2W, SUBCUTANEOUS
     Route: 058
     Dates: start: 20051010
  2. NASONEX [Concomitant]
  3. ADVAIR DISKUS 100/50 [Concomitant]
  4. ALBUTEROL (ALBUTEROL/ALBUTEROL SULFATE) [Concomitant]
  5. SINGULAIR [Concomitant]
  6. ELOCON [Concomitant]

REACTIONS (1)
  - SUBCUTANEOUS ABSCESS [None]
